FAERS Safety Report 23249856 (Version 2)
Quarter: 2023Q4

REPORT INFORMATION
  Report Type: Spontaneous
  Country: GB (occurrence: GB)
  Receive Date: 20231201
  Receipt Date: 20231207
  Transmission Date: 20240110
  Serious: Yes (Hospitalization, Other)
  Sender: FDA-Public Use
  Company Number: GB-MHRA-MED-202311211148443610-WCTNY

PATIENT
  Age: 18 Year
  Sex: Female

DRUGS (2)
  1. CITALOPRAM HYDROBROMIDE [Suspect]
     Active Substance: CITALOPRAM HYDROBROMIDE
     Indication: Adverse drug reaction
     Dosage: 20 MILLIGRAM, ONCE A DAY
     Route: 065
     Dates: start: 20231117, end: 20231117
  2. CITALOPRAM HYDROBROMIDE [Suspect]
     Active Substance: CITALOPRAM HYDROBROMIDE
     Indication: Depression

REACTIONS (2)
  - Chills [Recovering/Resolving]
  - Medication error [Unknown]

NARRATIVE: CASE EVENT DATE: 20231117
